FAERS Safety Report 10765698 (Version 1)
Quarter: 2015Q1

REPORT INFORMATION
  Report Type: Spontaneous
  Country: US (occurrence: US)
  Receive Date: 20150205
  Receipt Date: 20150205
  Transmission Date: 20150721
  Serious: No
  Sender: FDA-Public Use
  Company Number: US-BAYER-2015-017159

PATIENT
  Age: 71 Year
  Sex: Male
  Weight: 86.17 kg

DRUGS (2)
  1. ALEVE [Suspect]
     Active Substance: NAPROXEN SODIUM
     Indication: ARTHRITIS
     Dosage: 1 DF, BID
     Route: 048
     Dates: start: 201501
  2. BAYER ASPIRIN REGIMEN REGULAR 325 MG STRENGTH [Suspect]
     Active Substance: ASPIRIN
     Indication: ARTHRALGIA
     Dosage: 2 DF, TID
     Route: 048
     Dates: start: 2013, end: 2013

REACTIONS (3)
  - Incorrect drug administration duration [None]
  - Drug ineffective [None]
  - Incorrect drug administration duration [None]

NARRATIVE: CASE EVENT DATE: 2013
